FAERS Safety Report 21572971 (Version 3)
Quarter: 2022Q4

REPORT INFORMATION
  Report Type: Report from Study
  Country: CA (occurrence: CA)
  Receive Date: 20221109
  Receipt Date: 20221122
  Transmission Date: 20230113
  Serious: Yes (Hospitalization, Other)
  Sender: FDA-Public Use
  Company Number: CA-HLS-202202030

PATIENT
  Age: 68 Year
  Sex: Female

DRUGS (2)
  1. CLOZARIL [Suspect]
     Active Substance: CLOZAPINE
     Indication: Product used for unknown indication
     Dosage: DRUG START DATE: 08-NOV-2022
     Route: 048
  2. CLOZARIL [Suspect]
     Active Substance: CLOZAPINE
     Indication: Product used for unknown indication
     Dosage: ON HOLD NIGHT OF  07-NOV-2022
     Route: 048
     Dates: start: 19980120

REACTIONS (6)
  - Neutrophil count decreased [Recovered/Resolved]
  - COVID-19 [Unknown]
  - Fatigue [Unknown]
  - Malaise [Unknown]
  - Asthenia [Unknown]
  - Leukopenia [Unknown]

NARRATIVE: CASE EVENT DATE: 20221104
